FAERS Safety Report 5725762-2 (Version None)
Quarter: 2008Q2

REPORT INFORMATION
  Report Type: 
  Country: None (occurrence: None)
  Receive Date: 20080429
  Receipt Date: 20080418
  Transmission Date: 20081010
  Serious: Yes (Hospitalization, Other)
  Sender: FDA-Public Use
  Company Number: 2008BI007194

PATIENT
  Age: 36 Year
  Sex: Female
  Weight: 47.6277 kg

DRUGS (8)
  1. TYSABRI [Suspect]
     Indication: MULTIPLE SCLEROSIS
     Dosage: 300 MG; QM; IV
     Route: 042
     Dates: start: 20070302, end: 20080104
  2. PROVIGIL [Concomitant]
  3. SANCTURA [Concomitant]
  4. YASMIN [Concomitant]
  5. RHINOCORT [Concomitant]
  6. TRILEPTAL [Concomitant]
  7. SONATA [Concomitant]
  8. VITAMIN B-12 [Concomitant]

REACTIONS (2)
  - ENDOMETRIOSIS [None]
  - NEOPLASM MALIGNANT [None]
